FAERS Safety Report 8523876-5 (Version None)
Quarter: 2012Q3

REPORT INFORMATION
  Report Type: 
  Country: None (occurrence: None)
  Receive Date: 20120720
  Receipt Date: 20120713
  Transmission Date: 20120928
  Serious: Yes (Hospitalization)
  Sender: FDA-Public Use
  Company Number: DK-EISAI INC-E7389-02238-CLI-DK

PATIENT
  Sex: Female

DRUGS (8)
  1. AMITRIPTYLINE HCL [Concomitant]
     Indication: PAIN
     Route: 048
  2. EPIRUBICIN HYDROCHLORIDE [Suspect]
     Indication: SARCOMA
     Route: 041
     Dates: start: 20120221
  3. MORPHINE SULFATE [Concomitant]
     Indication: PAIN
     Route: 048
  4. NORTRIPTYLINE HCL [Concomitant]
     Indication: PAIN
     Route: 048
  5. MORPHINE SULFATE [Concomitant]
     Indication: PAIN
     Route: 048
  6. PANTOPRAZOLE [Concomitant]
     Indication: PAIN
     Route: 048
  7. PREDNISOLONE [Concomitant]
     Indication: PAIN
     Route: 048
  8. ACETAMINOPHEN [Concomitant]
     Indication: PAIN
     Route: 048

REACTIONS (1)
  - LUNG INFECTION [None]
